FAERS Safety Report 10421404 (Version 1)
Quarter: 2014Q3

REPORT INFORMATION
  Report Type: Spontaneous
  Country: CA (occurrence: CA)
  Receive Date: 20140901
  Receipt Date: 20140901
  Transmission Date: 20150326
  Serious: Yes (Hospitalization)
  Sender: FDA-Public Use
  Company Number: CA-009507513-1408CAN016698

PATIENT
  Age: 38 Year
  Sex: Female

DRUGS (1)
  1. EMEND [Suspect]
     Active Substance: APREPITANT
     Indication: NEOPLASM MALIGNANT
     Dosage: TRIPACK, OVER THREE DAYS
     Route: 048

REACTIONS (3)
  - Toothache [Unknown]
  - Pyrexia [Unknown]
  - Blood potassium decreased [Unknown]

NARRATIVE: CASE EVENT DATE: 20140825
